FAERS Safety Report 18505531 (Version 3)
Quarter: 2021Q1

REPORT INFORMATION
  Report Type: Spontaneous
  Country: US (occurrence: US)
  Receive Date: 20201116
  Receipt Date: 20210203
  Transmission Date: 20210419
  Serious: Yes (Other)
  Sender: FDA-Public Use
  Company Number: US-SA-2020SA315028

PATIENT
  Age: 74 Year
  Sex: Female

DRUGS (6)
  1. TRIAMCINOLONE ACETONIDE. [Suspect]
     Active Substance: TRIAMCINOLONE ACETONIDE
     Indication: RETINITIS VIRAL
     Dosage: 40 MG/ML
     Route: 042
  2. AZATHIOPRINE. [Suspect]
     Active Substance: AZATHIOPRINE
     Indication: DERMATOMYOSITIS
     Dosage: UNK
  3. PREDNISOLONE ACETATE. [Suspect]
     Active Substance: PREDNISOLONE ACETATE
     Indication: IRITIS
     Dosage: 1 %
     Route: 061
  4. IMMUNOGLOBULINS NOS [Concomitant]
     Active Substance: IMMUNE GLOBULIN NOS
     Indication: DERMATOMYOSITIS
     Dosage: UNK
  5. PREDNISONE. [Suspect]
     Active Substance: PREDNISONE
     Indication: RETINITIS VIRAL
     Dosage: 60 MG
     Route: 048
  6. PREDNISONE. [Suspect]
     Active Substance: PREDNISONE
     Dosage: 10 MG, QD OVER A 1 WEEK PERIOD

REACTIONS (12)
  - Tractional retinal detachment [Recovered/Resolved]
  - Blindness [Not Recovered/Not Resolved]
  - Pupillary reflex impaired [Not Recovered/Not Resolved]
  - Retinal fibrosis [Not Recovered/Not Resolved]
  - Chorioretinal scar [Not Recovered/Not Resolved]
  - Visual impairment [Not Recovered/Not Resolved]
  - Retinitis viral [Recovered/Resolved]
  - Uveitis [Recovered/Resolved]
  - Rhegmatogenous retinal detachment [Recovered/Resolved]
  - Necrotising retinitis [Recovered/Resolved]
  - Optic atrophy [Not Recovered/Not Resolved]
  - Eye infection toxoplasmal [Recovering/Resolving]
